FAERS Safety Report 9154127 (Version 1)
Quarter: 2013Q1

REPORT INFORMATION
  Report Type: Spontaneous
  Country: US (occurrence: US)
  Receive Date: 20130311
  Receipt Date: 20130311
  Transmission Date: 20140127
  Serious: Yes (Hospitalization, Disabling, Other)
  Sender: FDA-Public Use
  Company Number: US-SANOFI-AVENTIS-2013SA022377

PATIENT
  Age: 48 Year
  Sex: Male

DRUGS (3)
  1. LANTUS SOLOSTAR [Suspect]
     Dosage: DOSE:50 UNIT(S)
     Route: 058
     Dates: start: 2008
  2. SOLOSTAR [Suspect]
     Dates: start: 2008
  3. NOVOLOG [Concomitant]

REACTIONS (7)
  - Treatment noncompliance [Unknown]
  - Grand mal convulsion [Unknown]
  - Dysarthria [Unknown]
  - Confusional state [Unknown]
  - Disability [Not Recovered/Not Resolved]
  - Cardiac disorder [Unknown]
  - Cerebrovascular accident [Unknown]
